FAERS Safety Report 10085558 (Version 1)
Quarter: 2014Q2

REPORT INFORMATION
  Report Type: Spontaneous
  Country: FR (occurrence: FR)
  Receive Date: 20140418
  Receipt Date: 20140418
  Transmission Date: 20141212
  Serious: Yes (Other)
  Sender: FDA-Public Use
  Company Number: FR-ROCHE-1381088

PATIENT
  Sex: Male

DRUGS (2)
  1. ROCEPHINE [Suspect]
     Indication: MALARIA
     Route: 042
     Dates: start: 20140306
  2. MALACEF [Suspect]
     Indication: MALARIA
     Route: 042
     Dates: start: 20140306, end: 20140313

REACTIONS (1)
  - Conjunctivitis [Recovering/Resolving]
